FAERS Safety Report 7807987-5 (Version None)
Quarter: 2011Q4

REPORT INFORMATION
  Report Type: 
  Country: None (occurrence: None)
  Receive Date: 20111011
  Receipt Date: 20111011
  Transmission Date: 20120403
  Serious: Yes (Other)
  Sender: FDA-Public Use
  Company Number: None

PATIENT
  Sex: Male

DRUGS (1)
  1. ZYTIGA [Suspect]
     Dosage: 1000MG
     Route: 048
     Dates: start: 20110622, end: 20111010

REACTIONS (1)
  - OEDEMA PERIPHERAL [None]
